FAERS Safety Report 7600349-5 (Version None)
Quarter: 2011Q3

REPORT INFORMATION
  Report Type: 
  Country: None (occurrence: None)
  Receive Date: 20110711
  Receipt Date: 20110630
  Transmission Date: 20111222
  Serious: Yes (Congenital Anomaly)
  Sender: FDA-Public Use
  Company Number: IL-BAYER-2011-056420

PATIENT
  Sex: Male

DRUGS (1)
  1. MIRENA [Suspect]
     Dosage: UNK
     Route: 064
     Dates: start: 20110101

REACTIONS (3)
  - CARDIAC DISORDER [None]
  - PREGNANCY WITH CONTRACEPTIVE DEVICE [None]
  - FOETAL DISORDER [None]
